FAERS Safety Report 8533112-1 (Version None)
Quarter: 2012Q3

REPORT INFORMATION
  Report Type: 
  Country: None (occurrence: None)
  Receive Date: 20120711
  Receipt Date: 20120701
  Transmission Date: 20120928
  Serious: Yes (Hospitalization, Other)
  Sender: FDA-Public Use
  Company Number: 2012AT000383

PATIENT
  Age: 73 Year
  Sex: Female

DRUGS (1)
  1. ISOSORBIDE DINITRATE [Suspect]
     Indication: PRODUCT USED FOR UNKNOWN INDICATION
     Dosage: 2400 MG;PO
     Route: 048
     Dates: start: 20120701

REACTIONS (6)
  - TACHYCARDIA [None]
  - GASTROINTESTINAL SOUNDS ABNORMAL [None]
  - SUICIDE ATTEMPT [None]
  - TOXICITY TO VARIOUS AGENTS [None]
  - DIARRHOEA [None]
  - INCORRECT DOSE ADMINISTERED [None]
